FAERS Safety Report 19075979 (Version 1)
Quarter: 2021Q1

REPORT INFORMATION
  Report Type: Spontaneous
  Country: US (occurrence: US)
  Receive Date: 20210330
  Receipt Date: 20210330
  Transmission Date: 20210420
  Serious: Yes (Hospitalization, Disabling, Other)
  Sender: FDA-Public Use
  Company Number: US-ASTRAZENECA-2021A209404

PATIENT
  Age: 72 Year
  Sex: Female

DRUGS (3)
  1. BRILINTA [Suspect]
     Active Substance: TICAGRELOR
     Route: 048
  2. AMPYRA [Suspect]
     Active Substance: DALFAMPRIDINE
     Route: 065
  3. TERIFLUMOMID [Suspect]
     Active Substance: TERIFLUNOMIDE
     Indication: ILL-DEFINED DISORDER
     Route: 048

REACTIONS (17)
  - Dyspnoea [Unknown]
  - Balance disorder [Unknown]
  - Memory impairment [Unknown]
  - Fall [Unknown]
  - Tremor [Unknown]
  - Hypokinesia [Unknown]
  - General physical health deterioration [Unknown]
  - Drug hypersensitivity [Unknown]
  - Unevaluable event [Unknown]
  - Mental disorder [Unknown]
  - Musculoskeletal disorder [Unknown]
  - Dehydration [Unknown]
  - Heart rate increased [Unknown]
  - Hallucination [Unknown]
  - Parkinson^s disease [Not Recovered/Not Resolved]
  - Chills [Unknown]
  - Vitamin B12 decreased [Unknown]

NARRATIVE: CASE EVENT DATE: 201508
